FAERS Safety Report 15263997 (Version 1)
Quarter: 2018Q3

REPORT INFORMATION
  Report Type: Spontaneous
  Country: CA (occurrence: CA)
  Receive Date: 20180810
  Receipt Date: 20180810
  Transmission Date: 20181010
  Serious: Yes (Other)
  Sender: FDA-Public Use
  Company Number: CA-TEVA-2018-CA-937813

PATIENT
  Sex: Male

DRUGS (1)
  1. ASA [Suspect]
     Active Substance: ASPIRIN
     Route: 065

REACTIONS (3)
  - Haemorrhage [Unknown]
  - Hypersensitivity [Unknown]
  - Abdominal discomfort [Unknown]
